FAERS Safety Report 14148466 (Version 7)
Quarter: 2018Q2

REPORT INFORMATION
  Report Type: Spontaneous
  Country: CN (occurrence: CN)
  Receive Date: 20171101
  Receipt Date: 20180508
  Transmission Date: 20180711
  Serious: Yes (Other)
  Sender: FDA-Public Use
  Company Number: CN-009507513-1709CHN011584

PATIENT
  Age: 9 Month
  Sex: Male
  Weight: 5.25 kg

DRUGS (2)
  1. NOXAFIL [Suspect]
     Active Substance: POSACONAZOLE
     Dosage: 32 MG, THREE TIMES DAILY
     Route: 048
     Dates: start: 20171002, end: 20171006
  2. NOXAFIL [Suspect]
     Active Substance: POSACONAZOLE
     Dosage: 32 MG, THREE TIMES DAILY
     Route: 048
     Dates: start: 20170917, end: 20170922

REACTIONS (10)
  - Pyrexia [Recovered/Resolved]
  - Diarrhoea [Recovered/Resolved]
  - Off label use [Unknown]
  - Lung infection [Recovered/Resolved]
  - Pyrexia [Recovered/Resolved]
  - Diarrhoea [Recovered/Resolved]
  - Diarrhoea [Recovered/Resolved]
  - Abdominal distension [Recovered/Resolved]
  - Pyrexia [Recovered/Resolved]
  - Rash [Recovered/Resolved]

NARRATIVE: CASE EVENT DATE: 20170917
